FAERS Safety Report 7295762-2 (Version None)
Quarter: 2011Q1

REPORT INFORMATION
  Report Type: 
  Country: None (occurrence: None)
  Receive Date: 20110216
  Receipt Date: 20101217
  Transmission Date: 20110831
  Serious: No
  Sender: FDA-Public Use
  Company Number: US-ABBOTT-10P-163-0692606-00

PATIENT
  Sex: Female
  Weight: 82.628 kg

DRUGS (3)
  1. ASPIRIN [Concomitant]
     Indication: PRODUCT USED FOR UNKNOWN INDICATION
  2. DIOVAN [Concomitant]
     Indication: HYPERTENSION
  3. SIMCOR [Suspect]
     Indication: BLOOD CHOLESTEROL
     Dosage: 500/20

REACTIONS (3)
  - PAIN OF SKIN [None]
  - SKIN WARM [None]
  - TREATMENT NONCOMPLIANCE [None]
